FAERS Safety Report 7419361-4 (Version None)
Quarter: 2011Q2

REPORT INFORMATION
  Report Type: 
  Country: None (occurrence: None)
  Receive Date: 20110415
  Receipt Date: 20110406
  Transmission Date: 20111010
  Serious: Yes (Hospitalization, Other)
  Sender: FDA-Public Use
  Company Number: US-MERCK-1101USA00144

PATIENT
  Age: 82 Year
  Sex: Female
  Weight: 90 kg

DRUGS (2)
  1. FOSAMAX [Suspect]
     Indication: OSTEOPENIA
     Route: 048
     Dates: start: 20030101, end: 20050101
  2. FOSAMAX PLUS D [Suspect]
     Indication: OSTEOPENIA
     Route: 048
     Dates: start: 20070101, end: 20090101

REACTIONS (35)
  - ARTHROPATHY [None]
  - BRONCHITIS [None]
  - RADIUS FRACTURE [None]
  - EAR DISORDER [None]
  - ERYTHEMA [None]
  - FOOT FRACTURE [None]
  - OSTEONECROSIS OF JAW [None]
  - POLYP COLORECTAL [None]
  - LACERATION [None]
  - CHONDROPATHY [None]
  - LUMBAR SPINAL STENOSIS [None]
  - VITAMIN D DEFICIENCY [None]
  - ROTATOR CUFF SYNDROME [None]
  - DENTAL CARIES [None]
  - FALL [None]
  - OSTEOMYELITIS [None]
  - ADVERSE DRUG REACTION [None]
  - ORAL TORUS [None]
  - LOOSE TOOTH [None]
  - TRICUSPID VALVE INCOMPETENCE [None]
  - PRURITUS [None]
  - DRUG HYPERSENSITIVITY [None]
  - GINGIVAL ABSCESS [None]
  - ASTHMA [None]
  - SCIATICA [None]
  - BONE DISORDER [None]
  - EXOSTOSIS [None]
  - BACK PAIN [None]
  - RESTLESS LEGS SYNDROME [None]
  - PARONYCHIA [None]
  - PAIN IN EXTREMITY [None]
  - OSTEOARTHRITIS [None]
  - TOOTH FRACTURE [None]
  - SINUS DISORDER [None]
  - RASH [None]
